FAERS Safety Report 8840873 (Version 6)
Quarter: 2013Q4

REPORT INFORMATION
  Report Type: Report from Study
  Country: CA (occurrence: CA)
  Receive Date: 20121015
  Receipt Date: 20131219
  Transmission Date: 20140711
  Serious: Yes (Hospitalization, Other)
  Sender: FDA-Public Use
  Company Number: CA-INCYTE CORPORATION-2012IN001809

PATIENT
  Age: 54 Year
  Sex: Female
  Weight: 71.65 kg

DRUGS (13)
  1. JAKAVI [Suspect]
     Indication: MYELOFIBROSIS
     Dosage: 20 MG, BID
     Route: 048
     Dates: start: 20120608
  2. JAKAVI [Suspect]
     Dosage: 20 MG, BID
     Route: 048
     Dates: start: 201208
  3. JAKAVI [Suspect]
     Dosage: 25 MG, BID
     Route: 048
  4. JAKAVI [Suspect]
     Dosage: 20 MG, BID
     Route: 048
  5. JAKAVI [Suspect]
     Dosage: 25 MG, BID
     Route: 048
  6. HYDROXYUREA [Concomitant]
  7. ASA [Concomitant]
  8. ESTROGEN [Concomitant]
  9. PROGESTERON [Concomitant]
  10. MULTIVITAMIN [Concomitant]
  11. PANTOLOC [Concomitant]
  12. SENOKOT [Concomitant]
  13. ASPIRIN [Concomitant]

REACTIONS (23)
  - Cerebrovascular accident [Unknown]
  - Muscle spasms [Recovered/Resolved]
  - Lower respiratory tract infection [Unknown]
  - Platelet count increased [Not Recovered/Not Resolved]
  - Traumatic haematoma [Recovered/Resolved]
  - Muscle strain [Recovered/Resolved]
  - Lacrimation increased [Unknown]
  - Visual impairment [Unknown]
  - Hypertension [Unknown]
  - Loss of consciousness [Unknown]
  - Asthenia [Unknown]
  - Heart rate decreased [Unknown]
  - Electrolyte depletion [Unknown]
  - Pain in extremity [Unknown]
  - Swelling [Unknown]
  - Pigmentation disorder [Unknown]
  - Sleep terror [Unknown]
  - Pain [Unknown]
  - Fatigue [Unknown]
  - Haemoglobin decreased [Unknown]
  - Weight increased [Not Recovered/Not Resolved]
  - Dizziness [Unknown]
  - Drug ineffective [Unknown]
